FAERS Safety Report 7891778-3 (Version None)
Quarter: 2011Q4

REPORT INFORMATION
  Report Type: 
  Country: None (occurrence: None)
  Receive Date: 20111103
  Receipt Date: 20110810
  Transmission Date: 20120403
  Serious: No
  Sender: FDA-Public Use
  Company Number: US-AMGEN-USASP2011040556

PATIENT
  Age: 42 Year
  Sex: Female
  Weight: 72.562 kg

DRUGS (5)
  1. BENADRYL [Concomitant]
     Dosage: 25 MG, UNK
  2. HYDROCORTISONE [Concomitant]
     Dosage: 2.5 %, UNK
  3. LISINOPRIL [Concomitant]
     Dosage: 10 MG, UNK
  4. ENBREL [Suspect]
     Indication: PRODUCT USED FOR UNKNOWN INDICATION
     Dosage: 50 MG, QWK
  5. HYDROCHLOROTH [Concomitant]
     Dosage: 12.5 MG, UNK

REACTIONS (5)
  - STOMATITIS [None]
  - HEADACHE [None]
  - INJECTION SITE ERYTHEMA [None]
  - INJECTION SITE SWELLING [None]
  - SWOLLEN TONGUE [None]
